FAERS Safety Report 7922863-5 (Version None)
Quarter: 2011Q4

REPORT INFORMATION
  Report Type: 
  Country: None (occurrence: None)
  Receive Date: 20111117
  Receipt Date: 20110125
  Transmission Date: 20120403
  Serious: No
  Sender: FDA-Public Use
  Company Number: US-AMGEN-USASP2011004453

PATIENT
  Age: 63 Year
  Sex: Male
  Weight: 83.9 kg

DRUGS (12)
  1. NAPROXEN [Concomitant]
     Dosage: 250 MG, UNK
  2. ALTACE [Concomitant]
     Dosage: 5 MG, UNK
  3. ENBREL [Suspect]
     Indication: PRODUCT USED FOR UNKNOWN INDICATION
     Dosage: 50 MG, QWK
  4. CALCIUM [Concomitant]
     Dosage: 500 MG, UNK
  5. LIPITOR [Concomitant]
     Dosage: 10 MG, UNK
  6. CYANOCOBALAMIN [Concomitant]
  7. TOPROL-XL [Concomitant]
     Dosage: 50 MG, UNK
  8. ASPIRIN [Concomitant]
     Dosage: 81 MG, UNK
  9. NAPROXEN (ALEVE) [Concomitant]
     Dosage: 220 MG, UNK
  10. COLCHICINE [Concomitant]
     Dosage: 06 MG, UNK
  11. PRILOSEC [Concomitant]
     Dosage: 10 MG, UNK
  12. OMEGA 3                            /00931501/ [Concomitant]

REACTIONS (1)
  - PRURITUS [None]
